FAERS Safety Report 24608455 (Version 1)
Quarter: 2024Q4

REPORT INFORMATION
  Report Type: Spontaneous
  Country: US (occurrence: None)
  Receive Date: 20241111
  Receipt Date: 20241111
  Transmission Date: 20250115
  Serious: No
  Sender: Public
  Company Number: None

PATIENT
  Age: 74 Year
  Sex: Female

DRUGS (1)
  1. DUPIXENT [Suspect]
     Active Substance: DUPILUMAB
     Indication: Asthma
     Dosage: OTHER FREQUENCY : Q 14 DAYS;?
     Route: 058
     Dates: start: 20231203, end: 20241029

REACTIONS (3)
  - Vision blurred [None]
  - Fatigue [None]
  - Arthralgia [None]

NARRATIVE: CASE EVENT DATE: 20241111
